FAERS Safety Report 7672230-7 (Version None)
Quarter: 2011Q3

REPORT INFORMATION
  Report Type: 
  Country: None (occurrence: None)
  Receive Date: 20110809
  Receipt Date: 20110727
  Transmission Date: 20111222
  Serious: Yes (Disabling)
  Sender: FDA-Public Use
  Company Number: PHHY2011JP70383

PATIENT
  Age: 52 Year
  Sex: Female

DRUGS (9)
  1. PURSENNID [Concomitant]
     Route: 048
  2. SALAGEN [Suspect]
     Indication: APTYALISM
     Dosage: 5 MG, TID
     Route: 048
     Dates: start: 20110604, end: 20110606
  3. METHYCOBAL [Concomitant]
  4. TS 1 [Concomitant]
  5. ZOMETA [Concomitant]
     Route: 042
  6. MARZULENE [Concomitant]
     Route: 048
  7. OXYCODONE HYDROCHLORIDE [Concomitant]
  8. LOXONIN [Concomitant]
  9. HOCHUUEKKITOU [Concomitant]
     Route: 048

REACTIONS (2)
  - VISUAL ACUITY REDUCED [None]
  - OPTIC NEURITIS [None]
